FAERS Safety Report 23285189 (Version 1)
Quarter: 2023Q4

REPORT INFORMATION
  Report Type: Spontaneous
  Country: HR (occurrence: None)
  Receive Date: 20231211
  Receipt Date: 20231211
  Transmission Date: 20240110
  Serious: Yes (Other)
  Sender: FDA-Public Use
  Company Number: 2023A277746

PATIENT
  Sex: Male

DRUGS (3)
  1. QUETIAPINE [Suspect]
     Active Substance: QUETIAPINE
     Dosage: DRANK 2 QUETIAPINE TABLETS OF UNKNOWN DOSE
     Route: 048
     Dates: start: 20231014, end: 20231014
  2. XANAX [Suspect]
     Active Substance: ALPRAZOLAM
     Dosage: HE DRANK ONE TABLET OF XANAX
     Route: 048
     Dates: start: 20231014, end: 20231014
  3. ALPRAZOLAM [Suspect]
     Active Substance: ALPRAZOLAM
     Dosage: HE DRANK ONE TABLET OF HELEX
     Route: 048
     Dates: start: 20231014, end: 20231014

REACTIONS (3)
  - Somnolence [Unknown]
  - Suicide attempt [Unknown]
  - Slow speech [Unknown]

NARRATIVE: CASE EVENT DATE: 20231014
